FAERS Safety Report 4437509-0 (Version None)
Quarter: 2004Q3

REPORT INFORMATION
  Report Type: 
  Country: None (occurrence: None)
  Receive Date: 20040831
  Receipt Date: 20040819
  Transmission Date: 20050211
  Serious: Yes (Hospitalization, Other)
  Sender: FDA-Public Use
  Company Number: US-JNJFOC-20040604321

PATIENT
  Sex: Female
  Weight: 63.96 kg

DRUGS (8)
  1. REMICADE [Suspect]
     Route: 042
  2. REMICADE [Suspect]
     Indication: CROHN'S DISEASE
     Dosage: INFLIXIMAB STOPPED OVER TWO YEARS AGO.
     Route: 042
  3. ULTRACET [Suspect]
     Indication: PAIN
  4. PREDNISONE [Concomitant]
  5. MERCAPTOPURINE [Concomitant]
  6. FLUCONAZOLE [Concomitant]
  7. METRONIDAZOLE [Concomitant]
  8. ALENDRONATE SODIUM [Concomitant]

REACTIONS (11)
  - ARTHRALGIA [None]
  - BACK PAIN [None]
  - CHROMATOPSIA [None]
  - DIZZINESS [None]
  - HEADACHE [None]
  - NAUSEA [None]
  - SERUM SICKNESS [None]
  - URTICARIA [None]
  - VERTIGO [None]
  - VERTIGO POSITIONAL [None]
  - VISUAL FIELD DEFECT [None]
